FAERS Safety Report 14831577 (Version 2)
Quarter: 2018Q2

REPORT INFORMATION
  Report Type: Spontaneous
  Country: US (occurrence: US)
  Receive Date: 20180501
  Receipt Date: 20180507
  Transmission Date: 20180711
  Serious: No
  Sender: FDA-Public Use
  Company Number: US-PFIZER INC-2018176542

PATIENT
  Sex: Female
  Weight: 39.92 kg

DRUGS (2)
  1. LYRICA [Suspect]
     Active Substance: PREGABALIN
     Dosage: 150 MG, DAILY AT NIGHT
  2. LYRICA [Suspect]
     Active Substance: PREGABALIN
     Indication: PAIN
     Dosage: 50 MG, THREE TIMES DAILY (1 IN THE MORNING, 2 AT NIGHT)
     Dates: start: 20180426

REACTIONS (3)
  - Drug effect incomplete [Unknown]
  - Euphoric mood [Unknown]
  - Dizziness [Unknown]
